FAERS Safety Report 4551202-5 (Version None)
Quarter: 2005Q1

REPORT INFORMATION
  Report Type: 
  Country: None (occurrence: None)
  Receive Date: 20050111
  Receipt Date: 20050111
  Transmission Date: 20050727
  Serious: Yes (Other)
  Sender: FDA-Public Use
  Company Number: None

PATIENT
  Age: 41 Year
  Sex: Male
  Weight: 49.4421 kg

DRUGS (1)
  1. GABAPENTIN 300 MG CAPSULES [Suspect]
     Indication: BIPOLAR DISORDER
     Dosage: 300 MG PO QHS
     Route: 048
     Dates: start: 20041006, end: 20041106

REACTIONS (5)
  - CHEILITIS [None]
  - ORAL MUCOSAL BLISTERING [None]
  - PHARMACEUTICAL PRODUCT COMPLAINT [None]
  - STOMATITIS [None]
  - TONGUE ULCERATION [None]
